FAERS Safety Report 6183889-8 (Version None)
Quarter: 2009Q2

REPORT INFORMATION
  Report Type: 
  Country: None (occurrence: None)
  Receive Date: 20090508
  Receipt Date: 20090430
  Transmission Date: 20091009
  Serious: Yes (Other)
  Sender: FDA-Public Use
  Company Number: GR-ROCHE-630954

PATIENT
  Age: 34 Year
  Sex: Female

DRUGS (5)
  1. XELODA [Suspect]
     Dosage: FOR 14 DAYS FOLLOWING A DRUG FREE PERIOD OF 7 DAYS
     Route: 065
  2. HERCEPTIN [Suspect]
     Dosage: 6 MONTHLY CYCLES OF 3 WEEKLY TREATMENTS
     Route: 065
  3. TYKERB [Suspect]
     Dosage: DRUG REPORTED AS: ^TAIKERB^
     Route: 065
  4. TYKERB [Suspect]
     Route: 065
  5. TAXOL [Concomitant]
     Dosage: 6 MONTHLY CYCLES OF 3 WEEKLY TREATMENTS

REACTIONS (3)
  - HAEMORRHAGE [None]
  - HYPERBILIRUBINAEMIA [None]
  - OCULAR NEOPLASM [None]
